FAERS Safety Report 6442145-0 (Version None)
Quarter: 2009Q4

REPORT INFORMATION
  Report Type: 
  Country: None (occurrence: None)
  Receive Date: 20091116
  Receipt Date: 20091105
  Transmission Date: 20100525
  Serious: Yes (Other)
  Sender: FDA-Public Use
  Company Number: PHHY2009CA48579

PATIENT
  Sex: Female

DRUGS (13)
  1. ALISKIREN ALI+ [Suspect]
     Indication: HYPERTENSION
     Dosage: 150 MG, UNK
     Route: 048
     Dates: start: 20090804, end: 20090817
  2. ALISKIREN ALI+ [Suspect]
     Dosage: UNK
     Route: 048
     Dates: start: 20090826, end: 20090831
  3. CRESTOR [Concomitant]
     Dosage: 10 DAILY
  4. EFFEXOR XR [Concomitant]
     Dosage: 25+325 DAILY
  5. RISPERDAL [Concomitant]
     Dosage: 1 MG 1/2 TAB EVERY NIGHT
  6. DIOVAN HCT [Concomitant]
     Dosage: 160/12.5
  7. ACTONEL [Concomitant]
     Dosage: 35/WEEK
  8. CLONIDINE [Concomitant]
     Dosage: 0.1 1/2 TAB BID
  9. CALCIUM [Concomitant]
     Dosage: 500
  10. VITAMIN D [Concomitant]
     Dosage: 400 UNK, BID
  11. TYLENOL (CAPLET) [Concomitant]
  12. ADALAT [Concomitant]
     Dosage: 20 MG, UNK
  13. ASPIRIN [Concomitant]
     Dosage: 81

REACTIONS (2)
  - DEPRESSION [None]
  - SCHIZOPHRENIA [None]
